FAERS Safety Report 17457331 (Version 4)
Quarter: 2020Q3

REPORT INFORMATION
  Report Type: Report from Study
  Country: None (occurrence: US)
  Receive Date: 20200225
  Receipt Date: 20200701
  Transmission Date: 20201102
  Serious: Yes (Hospitalization)
  Sender: FDA-Public Use
  Company Number: US-ABBVIE-20K-163-3289470-00

PATIENT
  Age: 29 Year
  Sex: Female
  Weight: 68.1 kg

DRUGS (22)
  1. ACCUTANE [Concomitant]
     Active Substance: ISOTRETINOIN
     Indication: ACNE CYSTIC
  2. ZOFRAN [Concomitant]
     Active Substance: ONDANSETRON HYDROCHLORIDE
     Indication: PROPHYLAXIS OF NAUSEA AND VOMITING
  3. ACCUTANE [Suspect]
     Active Substance: ISOTRETINOIN
     Indication: ABSCESS
     Route: 065
  4. MOTRIN [Concomitant]
     Active Substance: IBUPROFEN
     Indication: HEADACHE
  5. MOTRIN [Concomitant]
     Active Substance: IBUPROFEN
     Indication: NECK PAIN
  6. ACCUTANE [Suspect]
     Active Substance: ISOTRETINOIN
     Indication: ACNE CYSTIC
  7. LORAZEPAM. [Concomitant]
     Active Substance: LORAZEPAM
     Indication: MIGRAINE
  8. TYLENOL [Concomitant]
     Active Substance: ACETAMINOPHEN
     Indication: NECK PAIN
  9. ALLOPURINOL. [Concomitant]
     Active Substance: ALLOPURINOL
     Indication: CROHN^S DISEASE
  10. TYLENOL [Concomitant]
     Active Substance: ACETAMINOPHEN
     Indication: HEADACHE
  11. MOTRIN [Concomitant]
     Active Substance: IBUPROFEN
     Indication: BACK PAIN
  12. HUMIRA [Suspect]
     Active Substance: ADALIMUMAB
     Route: 058
     Dates: start: 20190923
  13. MERCAPTOPURINE. [Concomitant]
     Active Substance: MERCAPTOPURINE
     Indication: CROHN^S DISEASE
  14. CLARITIN [Concomitant]
     Active Substance: LORATADINE
     Indication: HYPERSENSITIVITY
  15. MIRENA [Concomitant]
     Active Substance: LEVONORGESTREL
     Indication: CONTRACEPTION
     Dosage: IUD
  16. CEPHALEXIN. [Concomitant]
     Active Substance: CEPHALEXIN
     Indication: PRODUCT USED FOR UNKNOWN INDICATION
  17. HUMIRA [Suspect]
     Active Substance: ADALIMUMAB
     Indication: CROHN^S DISEASE
     Route: 058
     Dates: start: 201112, end: 20190825
  18. SUMATRIPTAN. [Concomitant]
     Active Substance: SUMATRIPTAN
     Indication: MIGRAINE
  19. TYLENOL [Concomitant]
     Active Substance: ACETAMINOPHEN
     Indication: BACK PAIN
  20. HUMIRA [Suspect]
     Active Substance: ADALIMUMAB
     Route: 058
  21. ACCUTANE [Concomitant]
     Active Substance: ISOTRETINOIN
     Indication: ACNE CYSTIC
  22. MULTIVITAMINS [Concomitant]
     Active Substance: VITAMINS
     Indication: VITAMIN SUPPLEMENTATION

REACTIONS (10)
  - Hepatic enzyme increased [Recovered/Resolved]
  - Acne cystic [Not Recovered/Not Resolved]
  - Swelling [Recovering/Resolving]
  - Injection site bruising [Recovered/Resolved]
  - Subcutaneous abscess [Recovering/Resolving]
  - Streptococcal infection [Recovered/Resolved]
  - Subcutaneous abscess [Recovering/Resolving]
  - Stress [Not Recovered/Not Resolved]
  - Wrong technique in product usage process [Unknown]
  - Pyrexia [Recovered/Resolved]

NARRATIVE: CASE EVENT DATE: 201907
